FAERS Safety Report 16901399 (Version 1)
Quarter: 2019Q4

REPORT INFORMATION
  Report Type: Report from Study
  Country: NL (occurrence: NL)
  Receive Date: 20191009
  Receipt Date: 20191009
  Transmission Date: 20200122
  Serious: Yes (Hospitalization)
  Sender: FDA-Public Use
  Company Number: NL-AMGEN-NLDSL2019144060

PATIENT
  Age: 63 Year
  Sex: Female

DRUGS (4)
  1. PALBOCICLIB [Concomitant]
     Active Substance: PALBOCICLIB
     Dosage: 125 MILLIGRAM, QD
  2. XGEVA [Suspect]
     Active Substance: DENOSUMAB
     Indication: PROPHYLAXIS
     Dosage: 120 MILLIGRAM PER MILLILITRE/1.7 ML, Q4WK
     Route: 065
  3. CALCIUM CARBONATE W/VITAMIN D [Concomitant]
     Dosage: 1000 MILLIGRAM, QD, 2.5G/880IE
  4. FULVESTRANT. [Concomitant]
     Active Substance: FULVESTRANT
     Dosage: UNK UNK, Q4WK,250MG=5ML (50MG/ML) 2 INJ PER 4 WEEKS

REACTIONS (3)
  - Diarrhoea [Unknown]
  - Dehydration [Unknown]
  - Fatigue [Recovering/Resolving]

NARRATIVE: CASE EVENT DATE: 2019
